FAERS Safety Report 7815674-2 (Version None)
Quarter: 2011Q4

REPORT INFORMATION
  Report Type: 
  Country: None (occurrence: None)
  Receive Date: 20111014
  Receipt Date: 20110930
  Transmission Date: 20120403
  Serious: No
  Sender: FDA-Public Use
  Company Number: US-B.I. PHARMACEUTICALS,INC./RIDGEFIELD-2011-BP-23265BP

PATIENT
  Sex: Male

DRUGS (9)
  1. VESICARE [Concomitant]
     Indication: HYPERTONIC BLADDER
     Dosage: 10 MG
     Route: 048
     Dates: start: 20110201
  2. FELODIPINE [Concomitant]
     Indication: HYPERTENSION
     Dates: start: 19900101
  3. NEXIUM [Concomitant]
     Indication: GASTROOESOPHAGEAL REFLUX DISEASE
     Dates: start: 19900101
  4. LABETALOL HCL [Concomitant]
     Indication: HYPERTENSION
     Dates: start: 19900101
  5. VASOTEC [Concomitant]
     Indication: HYPERTENSION
     Dates: start: 19900101
  6. SYNTHROID [Concomitant]
     Indication: HYPOTHYROIDISM
     Dates: start: 20060101
  7. SPIRIVA [Suspect]
     Indication: CHRONIC OBSTRUCTIVE PULMONARY DISEASE
     Dosage: 18 MCG
     Route: 055
     Dates: start: 20110925
  8. JANUMET [Concomitant]
     Indication: TYPE 2 DIABETES MELLITUS
     Dates: start: 20070101
  9. CRESTOR [Concomitant]
     Indication: BLOOD CHOLESTEROL INCREASED
     Dosage: 20 MG
     Route: 048
     Dates: start: 19980101

REACTIONS (3)
  - CHAPPED LIPS [None]
  - LIP HAEMORRHAGE [None]
  - TACHYCARDIA [None]
